FAERS Safety Report 18416419 (Version 3)
Quarter: 2020Q4

REPORT INFORMATION
  Report Type: Report from Study
  Country: US (occurrence: US)
  Receive Date: 20201022
  Receipt Date: 20201203
  Transmission Date: 20210114
  Serious: Yes (Other)
  Sender: FDA-Public Use
  Company Number: NVSC2020US283326

PATIENT
  Age: 64 Year
  Sex: Female

DRUGS (1)
  1. ENTRESTO [Suspect]
     Active Substance: SACUBITRIL\VALSARTAN
     Indication: CARDIAC FAILURE
     Dosage: 50 MG, BID, (24/26 MG)
     Route: 048
     Dates: start: 2016

REACTIONS (2)
  - Myocardial infarction [Unknown]
  - Hypotension [Unknown]

NARRATIVE: CASE EVENT DATE: 2016
